FAERS Safety Report 23841484 (Version 1)
Quarter: 2024Q2

REPORT INFORMATION
  Report Type: Spontaneous
  Country: IN (occurrence: IN)
  Receive Date: 20240510
  Receipt Date: 20240510
  Transmission Date: 20240716
  Serious: Yes (Death)
  Sender: FDA-Public Use
  Company Number: IN-RDY-LIT/IND/24/0006874

PATIENT

DRUGS (1)
  1. AZACITIDINE [Suspect]
     Active Substance: AZACITIDINE
     Indication: Leukaemia monocytic
     Dosage: 5 CYCLES AS A BRIDGE

REACTIONS (2)
  - Treatment failure [Fatal]
  - Product use in unapproved indication [Unknown]
